FAERS Safety Report 18694129 (Version 3)
Quarter: 2021Q1

REPORT INFORMATION
  Report Type: Spontaneous
  Country: US (occurrence: US)
  Receive Date: 20210104
  Receipt Date: 20210223
  Transmission Date: 20210419
  Serious: Yes (Hospitalization, Other)
  Sender: FDA-Public Use
  Company Number: US-GLOBAL BLOOD THERAPEUTICS INC-US-GBT-20-04241

PATIENT
  Age: 21 Year
  Sex: Female

DRUGS (3)
  1. ENDARI [Concomitant]
     Active Substance: GLUTAMINE
     Indication: SICKLE CELL DISEASE
     Dates: start: 20191204, end: 20200619
  2. OXBRYTA [Suspect]
     Active Substance: VOXELOTOR
     Indication: SICKLE CELL DISEASE
     Route: 048
     Dates: start: 20200310, end: 20200607
  3. HYDROXYUREA. [Concomitant]
     Active Substance: HYDROXYUREA
     Indication: PAIN
     Dates: start: 201105

REACTIONS (3)
  - Sickle cell anaemia with crisis [Recovered/Resolved]
  - Bone marrow necrosis [Recovered/Resolved]
  - Product dose omission issue [Unknown]

NARRATIVE: CASE EVENT DATE: 20200601
